FAERS Safety Report 8197973-0 (Version None)
Quarter: 2012Q1

REPORT INFORMATION
  Report Type: 
  Country: None (occurrence: None)
  Receive Date: 20120309
  Receipt Date: 20120301
  Transmission Date: 20120608
  Serious: Yes (Hospitalization, Congenital Anomaly)
  Sender: FDA-Public Use
  Company Number: DE-TEVA-325439GER

PATIENT
  Sex: Female
  Weight: 3.29 kg

DRUGS (3)
  1. METFORMIN HCL [Suspect]
     Route: 064
  2. DEKRISTOL [Concomitant]
     Route: 064
  3. LEVOTHYROXINE SODIUM [Concomitant]
     Route: 064

REACTIONS (1)
  - CONGENITAL OVARIAN ANOMALY [None]
